FAERS Safety Report 19514891 (Version 2)
Quarter: 2021Q3

REPORT INFORMATION
  Report Type: Report from Study
  Country: BR (occurrence: BR)
  Receive Date: 20210710
  Receipt Date: 20210813
  Transmission Date: 20211014
  Serious: Yes (Other)
  Sender: FDA-Public Use
  Company Number: NVSC2021BR148951

PATIENT
  Age: 75 Year
  Sex: Male

DRUGS (1)
  1. ENTRESTO [Suspect]
     Active Substance: SACUBITRIL\VALSARTAN
     Indication: PRODUCT USED FOR UNKNOWN INDICATION
     Dosage: 24/26 MG
     Route: 065
     Dates: start: 20210608

REACTIONS (9)
  - Cardiac disorder [Unknown]
  - Insomnia [Unknown]
  - Malaise [Recovering/Resolving]
  - Palpitations [Unknown]
  - Nervousness [Unknown]
  - Fatigue [Unknown]
  - Middle insomnia [Unknown]
  - Arrhythmia [Recovering/Resolving]
  - Drug ineffective [Unknown]

NARRATIVE: CASE EVENT DATE: 20210608
